FAERS Safety Report 9108271 (Version 1)
Quarter: 2013Q1

REPORT INFORMATION
  Report Type: Spontaneous
  Country: DE (occurrence: DE)
  Receive Date: 20130222
  Receipt Date: 20130222
  Transmission Date: 20140127
  Serious: Yes (Hospitalization)
  Sender: FDA-Public Use
  Company Number: DE-009507513-1301DEU008625

PATIENT
  Age: 21 Year
  Sex: Female

DRUGS (3)
  1. COSOPT-S [Suspect]
     Indication: GLAUCOMA
     Dosage: UNK UNK, BID
     Route: 047
     Dates: start: 20121219, end: 20130104
  2. TAFLOTAN [Concomitant]
     Indication: GLAUCOMA
     Dosage: UNK, QD
     Route: 047
     Dates: start: 2011
  3. AZARGA [Concomitant]
     Indication: GLAUCOMA
     Dosage: UNK, BID
     Route: 047
     Dates: start: 201206, end: 201212

REACTIONS (3)
  - Circulatory collapse [Recovering/Resolving]
  - Hypoaesthesia [Unknown]
  - Hypotension [Recovered/Resolved]
